FAERS Safety Report 24394367 (Version 2)
Quarter: 2024Q4

REPORT INFORMATION
  Report Type: Spontaneous
  Country: CN (occurrence: CN)
  Receive Date: 20241004
  Receipt Date: 20241024
  Transmission Date: 20250115
  Serious: Yes (Hospitalization, Other)
  Sender: NOVO NORDISK
  Company Number: CN-NOVOPROD-1289278

PATIENT
  Age: 64 Year
  Sex: Female
  Weight: 70 kg

DRUGS (6)
  1. INSULIN ASPART [Suspect]
     Active Substance: INSULIN ASPART
     Indication: Type 2 diabetes mellitus
     Dosage: 22 IU, BID(MORNING AND EVENING)
     Dates: end: 202409
  2. METFORMIN [Concomitant]
     Active Substance: METFORMIN HYDROCHLORIDE
     Indication: Type 2 diabetes mellitus
     Dosage: TWO TABLETS THREE TIMES A DAY
  3. NOVORAPID [Suspect]
     Active Substance: INSULIN ASPART
     Indication: Type 2 diabetes mellitus
     Dosage: 6 IU, TID (MORNING, AFTERNOON, AND EVENING)
     Dates: start: 202309
  4. INSULIN GLARGINE [Concomitant]
     Active Substance: INSULIN GLARGINE
     Indication: Type 2 diabetes mellitus
     Dosage: 20 IU, QD(AT BEDTIME-NIGHT)
     Dates: start: 202309
  5. ADALAT [Concomitant]
     Active Substance: NIFEDIPINE
     Indication: Type 2 diabetes mellitus
     Dosage: ONE TABLET ONCE A DAY
  6. SACUBITRIL\VALSARTAN [Concomitant]
     Active Substance: SACUBITRIL\VALSARTAN
     Indication: Type 2 diabetes mellitus
     Dosage: UNK

REACTIONS (8)
  - Cerebral infarction [Recovered/Resolved]
  - Thyroid mass [Unknown]
  - Neuropathy peripheral [Unknown]
  - Blood glucose increased [Not Recovered/Not Resolved]
  - Diabetic nephropathy [Unknown]
  - Condition aggravated [Unknown]
  - Hypertension [Unknown]
  - Incorrect dose administered [Unknown]

NARRATIVE: CASE EVENT DATE: 20230910
